FAERS Safety Report 15436591 (Version 4)
Quarter: 2019Q2

REPORT INFORMATION
  Report Type: Spontaneous
  Country: US (occurrence: US)
  Receive Date: 20180927
  Receipt Date: 20190603
  Transmission Date: 20190711
  Serious: Yes (Other)
  Sender: FDA-Public Use
  Company Number: US-PFIZER INC-2018388809

PATIENT
  Age: 64 Year
  Sex: Male

DRUGS (1)
  1. LYRICA [Suspect]
     Active Substance: PREGABALIN
     Indication: NERVE INJURY
     Dosage: 300 MG, UNK

REACTIONS (6)
  - Loss of personal independence in daily activities [Unknown]
  - Gait inability [Unknown]
  - Limb discomfort [Unknown]
  - Fall [Unknown]
  - Hip fracture [Unknown]
  - Pain in extremity [Unknown]
